FAERS Safety Report 6727368-5 (Version None)
Quarter: 2010Q2

REPORT INFORMATION
  Report Type: 
  Country: None (occurrence: None)
  Receive Date: 20100517
  Receipt Date: 20100504
  Transmission Date: 20101027
  Serious: Yes (Other)
  Sender: FDA-Public Use
  Company Number: PHHY2009BR57119

PATIENT
  Sex: Female

DRUGS (1)
  1. DIOVAN [Suspect]

REACTIONS (3)
  - FALL [None]
  - FEELING ABNORMAL [None]
  - HEAD INJURY [None]
